FAERS Safety Report 20010881 (Version 1)
Quarter: 2021Q4

REPORT INFORMATION
  Report Type: Spontaneous
  Country: US (occurrence: US)
  Receive Date: 20211029
  Receipt Date: 20211029
  Transmission Date: 20220303
  Serious: Yes (Other)
  Sender: FDA-Public Use
  Company Number: None

PATIENT
  Age: 29 Year
  Sex: Female

DRUGS (1)
  1. NALTREXONE [Suspect]
     Active Substance: NALTREXONE
     Indication: Alcohol use disorder
     Route: 048
     Dates: start: 20211013, end: 20211028

REACTIONS (3)
  - Nausea [None]
  - Headache [None]
  - Anxiety [None]

NARRATIVE: CASE EVENT DATE: 20211013
